FAERS Safety Report 15009599 (Version 4)
Quarter: 2018Q3

REPORT INFORMATION
  Report Type: Spontaneous
  Country: US (occurrence: US)
  Receive Date: 20180614
  Receipt Date: 20180829
  Transmission Date: 20181010
  Serious: No
  Sender: FDA-Public Use
  Company Number: US-ASTRAZENECA-2018SE68177

PATIENT
  Age: 883 Month
  Sex: Female

DRUGS (14)
  1. FASENRA [Suspect]
     Active Substance: BENRALIZUMAB
     Indication: ASTHMA
     Dosage: EVERY 4 WEEKS
     Route: 058
     Dates: start: 20180411
  2. BYDUREON [Suspect]
     Active Substance: EXENATIDE
     Route: 065
  3. FUROSEMIDE. [Concomitant]
     Active Substance: FUROSEMIDE
  4. BIOTIN [Concomitant]
     Active Substance: BIOTIN
  5. SYMBICORT [Suspect]
     Active Substance: BUDESONIDE\FORMOTEROL FUMARATE DIHYDRATE
     Route: 055
  6. LEVOTHYROXINE SODIUM. [Concomitant]
     Active Substance: LEVOTHYROXINE SODIUM
  7. PROAIR HFA [Concomitant]
     Active Substance: ALBUTEROL SULFATE
  8. DONEPEZIL HYDROCHLORIDE. [Concomitant]
     Active Substance: DONEPEZIL HYDROCHLORIDE
  9. PREDNISONE. [Concomitant]
     Active Substance: PREDNISONE
     Indication: ASTHMA
     Dosage: 5?10 MG FOR THE LAST 4?5 YEARS, DAILY
     Route: 065
  10. CANDESARTAN. [Concomitant]
     Active Substance: CANDESARTAN
  11. DIGOXIN. [Concomitant]
     Active Substance: DIGOXIN
  12. MELATONEX [Concomitant]
  13. MONTELUKAST [Concomitant]
     Active Substance: MONTELUKAST SODIUM
  14. PREDNISONE. [Concomitant]
     Active Substance: PREDNISONE

REACTIONS (8)
  - Asthenia [Unknown]
  - Musculoskeletal pain [Unknown]
  - Lethargy [Unknown]
  - Myalgia [Unknown]
  - Pain in extremity [Unknown]
  - Dementia [Not Recovered/Not Resolved]
  - Chest pain [Unknown]
  - Fatigue [Unknown]

NARRATIVE: CASE EVENT DATE: 201605
